FAERS Safety Report 6803399-1 (Version None)
Quarter: 2010Q2

REPORT INFORMATION
  Report Type: 
  Country: None (occurrence: None)
  Receive Date: 20100628
  Receipt Date: 20100615
  Transmission Date: 20101027
  Serious: No
  Sender: FDA-Public Use
  Company Number: US-B.I. PHARMACEUTICALS,INC./RIDGEFIELD-2010-BP-03963BP

PATIENT
  Sex: Female

DRUGS (2)
  1. ZANTAC [Suspect]
     Indication: DYSPEPSIA
     Dosage: 900 MG
     Route: 048
  2. PROAIR HFA [Concomitant]
     Indication: ASTHMA
     Route: 055

REACTIONS (2)
  - DYSPEPSIA [None]
  - OVERDOSE [None]
